FAERS Safety Report 9749036 (Version 2)
Quarter: 2013Q4

REPORT INFORMATION
  Report Type: Spontaneous
  Country: US (occurrence: US)
  Receive Date: 20131212
  Receipt Date: 20131212
  Transmission Date: 20140711
  Serious: Yes (Other)
  Sender: FDA-Public Use
  Company Number: US-INCYTE CORPORATION-2013IN001548

PATIENT
  Sex: Female

DRUGS (13)
  1. JAKAFI [Suspect]
     Indication: MYELOFIBROSIS
     Dosage: 20 MG, BID
     Route: 048
     Dates: start: 20130619, end: 2013
  2. JAKAFI [Suspect]
     Dosage: 20 MG, BID
     Route: 048
     Dates: start: 2013, end: 2013
  3. CENTRUM SILVER [Concomitant]
  4. FUROSEMIDE [Concomitant]
     Dosage: 20 MG, UNK
  5. GABAPENTIN [Concomitant]
     Dosage: 100 MG, UNK
  6. HYDROXYUREA [Concomitant]
     Dosage: 500 MG, UNK
  7. CALCIUM [Concomitant]
     Dosage: 500 MG, UNK
  8. ASPIRIN [Concomitant]
     Dosage: 81 MG, UNK
  9. VITAMIN D3 [Concomitant]
     Dosage: 1000 UT, UNK
  10. VASOTEC [Concomitant]
     Dosage: 10 MG, UNK
  11. IRON [Concomitant]
     Dosage: 27 MG, UNK
  12. TUMS [Concomitant]
  13. MAGNESIUM [Concomitant]
     Dosage: 250 MG

REACTIONS (6)
  - Haemoglobin decreased [Unknown]
  - Red blood cell count decreased [Unknown]
  - White blood cell count decreased [Unknown]
  - Dysphagia [Unknown]
  - Product taste abnormal [Unknown]
  - Drug dose omission [Unknown]
